FAERS Safety Report 20086124 (Version 1)
Quarter: 2021Q4

REPORT INFORMATION
  Report Type: Spontaneous
  Country: US (occurrence: None)
  Receive Date: 20211118
  Receipt Date: 20211118
  Transmission Date: 20220303
  Serious: Yes (Hospitalization)
  Sender: FDA-Public Use
  Company Number: None

PATIENT
  Sex: Male
  Weight: 95.9 kg

DRUGS (2)
  1. CARBOPLATIN [Suspect]
     Active Substance: CARBOPLATIN
  2. PACLITAXEL (TAXOL) [Concomitant]

REACTIONS (4)
  - Pyelonephritis [None]
  - Diarrhoea [None]
  - Dizziness [None]
  - Urinary tract infection bacterial [None]

NARRATIVE: CASE EVENT DATE: 20211108
